FAERS Safety Report 11918810 (Version 1)
Quarter: 2016Q1

REPORT INFORMATION
  Report Type: Spontaneous
  Country: US (occurrence: US)
  Receive Date: 20160115
  Receipt Date: 20160115
  Transmission Date: 20160526
  Serious: Yes (Other)
  Sender: FDA-Public Use
  Company Number: US-JNJFOC-20151202600

PATIENT

DRUGS (6)
  1. METHOTREXATE [Concomitant]
     Active Substance: METHOTREXATE
     Indication: RETINAL VASCULITIS
     Route: 065
  2. INFLIXIMAB [Suspect]
     Active Substance: INFLIXIMAB
     Indication: RETINAL VASCULITIS
     Route: 042
     Dates: start: 200707
  3. MYCOPHENOLATE [Concomitant]
     Active Substance: MYCOPHENOLIC ACID
     Indication: RETINAL VASCULITIS
     Route: 065
  4. INFLIXIMAB [Suspect]
     Active Substance: INFLIXIMAB
     Indication: RETINAL VASCULITIS
     Route: 042
  5. CYCLOSPORINE. [Concomitant]
     Active Substance: CYCLOSPORINE
     Indication: RETINAL VASCULITIS
     Route: 065
  6. INFLIXIMAB [Suspect]
     Active Substance: INFLIXIMAB
     Indication: RETINAL VASCULITIS
     Route: 042
     Dates: end: 201207

REACTIONS (8)
  - Diarrhoea infectious [Unknown]
  - Soft tissue infection [Unknown]
  - Product use issue [Unknown]
  - Leukopenia [Unknown]
  - Liver function test abnormal [Unknown]
  - Respiratory tract infection [Unknown]
  - Therapeutic response unexpected [Unknown]
  - Off label use [Unknown]
